FAERS Safety Report 5893669-6 (Version None)
Quarter: 2008Q3

REPORT INFORMATION
  Report Type: 
  Country: None (occurrence: None)
  Receive Date: 20080923
  Receipt Date: 20071008
  Transmission Date: 20090109
  Serious: No
  Sender: FDA-Public Use
  Company Number: US-ASTRAZENECA-2007UW23348

PATIENT
  Age: 50 Year
  Sex: Male

DRUGS (2)
  1. SEROQUEL [Suspect]
     Indication: ANXIETY
     Dosage: FOR 2 YEARS
     Route: 048
     Dates: start: 20050101
  2. ANAFRONIL [Concomitant]

REACTIONS (1)
  - EJACULATION DELAYED [None]
